FAERS Safety Report 7524826-0 (Version None)
Quarter: 2011Q2

REPORT INFORMATION
  Report Type: 
  Country: None (occurrence: None)
  Receive Date: 20110525
  Receipt Date: 20110518
  Transmission Date: 20111010
  Serious: Yes (Hospitalization, Other)
  Sender: FDA-Public Use
  Company Number: 2011SP022768

PATIENT
  Age: 47 Year
  Sex: Female

DRUGS (2)
  1. NEXPLANON (ETONOGESTREL /01502301/) [Suspect]
  2. NEXPLANON (ETONOGESTREL /01502301/) [Suspect]
     Indication: PRODUCT USED FOR UNKNOWN INDICATION
     Dates: start: 20101203

REACTIONS (1)
  - CEREBRAL INFARCTION [None]
